FAERS Safety Report 7544036-0 (Version None)
Quarter: 2011Q2

REPORT INFORMATION
  Report Type: 
  Country: None (occurrence: None)
  Receive Date: 20110613
  Receipt Date: 20051005
  Transmission Date: 20111010
  Serious: Yes (Death)
  Sender: FDA-Public Use
  Company Number: PHFR2005GB03072

PATIENT
  Sex: Male

DRUGS (4)
  1. CLOZAPINE [Suspect]
     Indication: SCHIZOPHRENIA
     Dosage: 475MG DAILY
     Route: 048
     Dates: start: 19961128
  2. AMISULPRIDE [Suspect]
     Dosage: 300 MG/DAY
     Route: 048
  3. DESMOPRESSIN [Concomitant]
     Indication: INCONTINENCE
     Dosage: I -2 PUFFS/DAY
     Route: 045
  4. HYOSCINE [Concomitant]
     Indication: SALIVARY HYPERSECRETION
     Dosage: 300 UG/DAY
     Route: 048

REACTIONS (1)
  - ASPIRATION [None]
